FAERS Safety Report 8186873-8 (Version None)
Quarter: 2012Q1

REPORT INFORMATION
  Report Type: 
  Country: None (occurrence: None)
  Receive Date: 20120301
  Receipt Date: 20120223
  Transmission Date: 20120608
  Serious: Yes (Hospitalization, Other)
  Sender: FDA-Public Use
  Company Number: 2009SP007425

PATIENT
  Age: 48 Year
  Sex: Male
  Weight: 65 kg

DRUGS (8)
  1. LOXAPINE HCL [Concomitant]
  2. CLONAZEPAM [Concomitant]
  3. TRIMEPRAZINE TARTRATE [Concomitant]
  4. PEGINTERFERON ALFA-2B [Suspect]
     Indication: HEPATITIS C
     Dosage: 70 MCG;QW;SC
     Route: 058
     Dates: start: 20060828
  5. ARTANE [Concomitant]
  6. RIBAVIRIN [Suspect]
     Indication: HEPATITIS C
     Dosage: 1000 MG;QD;PO
     Route: 048
     Dates: start: 20060828
  7. LANTUS [Concomitant]
  8. RISPERDAL [Concomitant]

REACTIONS (8)
  - PYREXIA [None]
  - LUNG DISORDER [None]
  - RALES [None]
  - HYPONATRAEMIA [None]
  - GAMMA-GLUTAMYLTRANSFERASE INCREASED [None]
  - CONFUSIONAL STATE [None]
  - THROMBOCYTOPENIA [None]
  - HYPERGLYCAEMIA [None]
